FAERS Safety Report 13945484 (Version 2)
Quarter: 2017Q4

REPORT INFORMATION
  Report Type: Spontaneous
  Country: US (occurrence: US)
  Receive Date: 20170907
  Receipt Date: 20171213
  Transmission Date: 20180320
  Serious: No
  Sender: FDA-Public Use
  Company Number: US-ALLERGAN-1729839US

PATIENT
  Sex: Female

DRUGS (2)
  1. ACZONE [Suspect]
     Active Substance: DAPSONE
     Indication: PRODUCT USED FOR UNKNOWN INDICATION
     Dosage: UNK
     Route: 065
  2. ACZONE [Suspect]
     Active Substance: DAPSONE
     Dosage: UNK UNK, QHS
     Route: 061

REACTIONS (3)
  - Rash [Not Recovered/Not Resolved]
  - Application site irritation [Recovered/Resolved]
  - Foreign body [Unknown]
